FAERS Safety Report 14917250 (Version 1)
Quarter: 2018Q2

REPORT INFORMATION
  Report Type: Spontaneous
  Country: None (occurrence: US)
  Receive Date: 20180521
  Receipt Date: 20180521
  Transmission Date: 20180711
  Serious: Yes (Hospitalization, Other)
  Sender: FDA-Public Use
  Company Number: US-DENTSPLY-2018SCDP000158

PATIENT
  Age: 22 Month
  Sex: Female

DRUGS (1)
  1. LIDOCAINE HCL [Suspect]
     Active Substance: LIDOCAINE HYDROCHLORIDE
     Indication: LUMBAR PUNCTURE
     Dosage: UNK

REACTIONS (1)
  - Embolia cutis medicamentosa [Recovered/Resolved]
